FAERS Safety Report 6575560-5 (Version None)
Quarter: 2010Q1

REPORT INFORMATION
  Report Type: 
  Country: None (occurrence: None)
  Receive Date: 20100208
  Receipt Date: 20100208
  Transmission Date: 20100710
  Serious: Yes (Other)
  Sender: FDA-Public Use
  Company Number: None

PATIENT
  Age: 14 Month
  Sex: Female
  Weight: 10 kg

DRUGS (1)
  1. CEFDINIR [Suspect]
     Indication: EAR INFECTION
     Dosage: 3 ML TWICE A DAY ORAL 047
     Route: 048
     Dates: start: 20100128, end: 20100204

REACTIONS (3)
  - FALL [None]
  - HYPERSOMNIA [None]
  - LOSS OF CONSCIOUSNESS [None]
